FAERS Safety Report 13405382 (Version 5)
Quarter: 2017Q3

REPORT INFORMATION
  Report Type: Spontaneous
  Country: PR (occurrence: PR)
  Receive Date: 20170405
  Receipt Date: 20170719
  Transmission Date: 20171127
  Serious: Yes (Other)
  Sender: FDA-Public Use
  Company Number: PR-PFIZER INC-2016064274

PATIENT
  Age: 58 Year
  Sex: Female
  Weight: 175.5 kg

DRUGS (37)
  1. VENTOLIN HFA [Concomitant]
     Active Substance: ALBUTEROL SULFATE
     Dosage: 90 UG, TWICE A DAY (EVERY 12 HOURS)
     Dates: start: 20140919
  2. EZETIMIBE. [Concomitant]
     Active Substance: EZETIMIBE
     Dosage: 10 MG, ONCE A DAY (EVERY 24 HOURS)
     Route: 048
     Dates: start: 20140714
  3. FERROUS SULFATE. [Concomitant]
     Active Substance: FERROUS SULFATE
     Indication: ANAEMIA
     Dosage: 325 MG, ONCE A DAY (EVERY 24 HOURS)
     Route: 048
     Dates: start: 20140630
  4. AMARYL [Concomitant]
     Active Substance: GLIMEPIRIDE
     Dosage: 4 MG, ONCE A DAY (EVERY 24 HOURS)
     Route: 048
     Dates: start: 20140313
  5. SOLOSITE [Concomitant]
     Indication: ULCER
     Dosage: UNK, TWICE A DAY (BID)
     Dates: start: 20140115
  6. CLINDAMYCIN HYDROCHLORIDE. [Concomitant]
     Active Substance: CLINDAMYCIN HYDROCHLORIDE
     Dosage: 300 MG, THREE TIMES A DAY (EVERY 8 HOURS)
     Route: 048
     Dates: start: 20130812
  7. LOSARTAN. [Concomitant]
     Active Substance: LOSARTAN
     Indication: BLOOD PRESSURE ABNORMAL
     Dosage: 100 MG, 1X/DAY
  8. HYDROCHLOROTHIAZIDE W/LOSARTAN [Concomitant]
     Active Substance: HYDROCHLOROTHIAZIDE\LOSARTAN
     Dosage: UNK UNK, ONCE A DAY (EVERY 24 HOURS)
     Route: 048
     Dates: start: 20140714
  9. TRAMADOL HCL [Concomitant]
     Active Substance: TRAMADOL HYDROCHLORIDE
     Dosage: 50 MG, UNK (EVERY 6-8 HOURS)
     Route: 048
     Dates: start: 20130619
  10. CLEOCIN [Concomitant]
     Active Substance: CLINDAMYCIN PHOSPHATE
     Dosage: 300 MG, THREE TIMES A DAY (TID)
     Route: 048
  11. LYRICA [Suspect]
     Active Substance: PREGABALIN
     Dosage: 100 MG, TWICE A DAY (BID)
     Route: 048
     Dates: end: 201702
  12. ATORVASTATIN CALCIUM. [Concomitant]
     Active Substance: ATORVASTATIN CALCIUM
     Dosage: 40 MG, ONCE A DAY (EVERY 24 HOURS)
     Route: 048
     Dates: start: 20150122
  13. HYDROCHLOROTHIAZIDE. [Concomitant]
     Active Substance: HYDROCHLOROTHIAZIDE
     Indication: FLUID RETENTION
     Dosage: 12.5 MG, ALTERNATE DAY (ONCE TAKE EVERY OTHER DAY)
  14. MAGNESIUM [Concomitant]
     Active Substance: MAGNESIUM
     Indication: MUSCLE SPASMS
     Dosage: 250 MG, 1X/DAY
  15. LYRICA [Suspect]
     Active Substance: PREGABALIN
     Indication: DIABETIC NEPHROPATHY
     Dosage: 75 MG, TWICE A DAY (BID)
     Route: 048
  16. ALBUTEROL SULFATE. [Concomitant]
     Active Substance: ALBUTEROL SULFATE
     Indication: ASTHMA
     Dosage: 2.5 MG, ONCE A DAY (2.5MG/3ML, EVERY 24 HOURS)
     Dates: start: 20130619
  17. MIRAPEX [Concomitant]
     Active Substance: PRAMIPEXOLE DIHYDROCHLORIDE
     Indication: RESTLESS LEGS SYNDROME
     Dosage: 1 MG, ONCE A DAY (EVERY 24 HOURS)
     Route: 048
     Dates: start: 20130619
  18. VASOTEC [Concomitant]
     Active Substance: ENALAPRIL MALEATE
     Indication: PROTEINURIA
     Dosage: 20 MG, 2X/DAY
  19. PROVENTIL HSA [Concomitant]
     Indication: ASTHMA
     Dosage: 2 DF, UNK (EVERY TWO DAYS)
  20. ASPIRIN. [Concomitant]
     Active Substance: ASPIRIN
     Indication: CARDIAC DISORDER
     Dosage: 325 MG, ONCE A DAY
     Route: 048
     Dates: start: 20130619
  21. MAXIMUM D3 [Concomitant]
     Active Substance: CHOLECALCIFEROL
     Indication: VITAMIN D ABNORMAL
     Dosage: 10000 IU, WEEKLY (ONCE A WEEK)
     Route: 048
     Dates: start: 20140313
  22. VITAMIN B12 [Concomitant]
     Active Substance: CYANOCOBALAMIN
     Dosage: 1000 UG, ONCE A DAY (EVERY 24 HOURS)
     Route: 048
     Dates: start: 20140313
  23. FLUTICASONE PROPIONATE. [Concomitant]
     Active Substance: FLUTICASONE PROPIONATE
     Indication: UPPER RESPIRATORY TRACT INFECTION
     Dosage: 50 UG, ONCE A DAY (EVERY 24 HOURS)
     Route: 045
     Dates: start: 20130808
  24. PREVNAR 13 [Concomitant]
     Active Substance: PNEUMOCOCCAL 13-VALENT CONJUGATE VACCINE
     Dosage: UNK, SINGLE
     Route: 030
  25. LEVOXYL [Concomitant]
     Active Substance: LEVOTHYROXINE SODIUM
     Dosage: 112 MG, DAILY
     Route: 048
  26. LEVOTHROID [Concomitant]
     Active Substance: LEVOTHYROXINE SODIUM
     Indication: THYROID DISORDER
     Dosage: 112 MG, 1X/DAY (ONE IN MORNING)
  27. METFORMIN [Concomitant]
     Active Substance: METFORMIN HYDROCHLORIDE
     Indication: DIABETES MELLITUS
     Dosage: 1000 MG, 2X/DAY
  28. TOUJEO [Concomitant]
     Active Substance: INSULIN GLARGINE
     Indication: DIABETES MELLITUS
     Dosage: 62 IU, 1X/DAY (ONCE IN MORNING)
  29. OXYGEN. [Concomitant]
     Active Substance: OXYGEN
     Indication: HYPOXIA
     Dosage: 2 L, 1X/DAY
  30. TRAMADOL. [Concomitant]
     Active Substance: TRAMADOL
     Indication: ARTHRITIS
     Dosage: TWO DAILY OR WHEN NECESSARY
  31. LORATADIN [Concomitant]
     Active Substance: LORATADINE
     Indication: RHINITIS
     Dosage: 10 MG, ONCE A DAY (EVERY 24 HOURS)
     Route: 048
     Dates: start: 20140619
  32. SULFAMETHOXAZOLE W/TRIMETHOPRIM [Concomitant]
     Active Substance: SULFAMETHOXAZOLE\TRIMETHOPRIM
     Dosage: UNK UNK, TWICE A DAY (EVERY 12 HOURS)
     Dates: start: 20130826
  33. ZETIA [Concomitant]
     Active Substance: EZETIMIBE
     Indication: BLOOD CHOLESTEROL ABNORMAL
     Dosage: 10 MG, 1X/DAY
  34. LEVOTHYROXINE SODIUM. [Concomitant]
     Active Substance: LEVOTHYROXINE SODIUM
     Dosage: 112 UG, ONCE A DAY (EVERY 24 HOURS)
     Route: 048
     Dates: start: 20150122
  35. METFORMIN HCL [Concomitant]
     Active Substance: METFORMIN HYDROCHLORIDE
     Dosage: 1000 MG, TWICE A DAY (EVERY 12 HOURS)
     Route: 048
     Dates: start: 20130619
  36. LIPITOR [Concomitant]
     Active Substance: ATORVASTATIN CALCIUM
     Indication: BLOOD CHOLESTEROL ABNORMAL
     Dosage: 40 MG, 1X/DAY
  37. FLUTICASONE. [Concomitant]
     Active Substance: FLUTICASONE
     Indication: HYPERSENSITIVITY
     Dosage: UNK UNK, AS NEEDED (NASAL SPRAY AS NEEDED)
     Route: 045

REACTIONS (4)
  - Pain [Not Recovered/Not Resolved]
  - Insomnia [Unknown]
  - Pain in extremity [Not Recovered/Not Resolved]
  - Cataract [Unknown]

NARRATIVE: CASE EVENT DATE: 201703
